FAERS Safety Report 7767737-8 (Version None)
Quarter: 2011Q3

REPORT INFORMATION
  Report Type: 
  Country: None (occurrence: None)
  Receive Date: 20110922
  Receipt Date: 20100827
  Transmission Date: 20111222
  Serious: No
  Sender: FDA-Public Use
  Company Number: US-ASTRAZENECA-2008UW14347

PATIENT
  Age: 19470 Day
  Sex: Male
  Weight: 90.7 kg

DRUGS (5)
  1. RISPERDAL [Concomitant]
     Indication: DEPRESSION
     Dates: start: 20030221, end: 20030301
  2. HALDOL [Concomitant]
     Dosage: 5 TO 10 MG
     Dates: start: 20030101, end: 20050101
  3. RISPERDAL [Concomitant]
     Indication: BIPOLAR DISORDER
     Dates: start: 20030221, end: 20030301
  4. RISPERDAL [Concomitant]
     Indication: POST-TRAUMATIC STRESS DISORDER
     Dates: start: 20030221, end: 20030301
  5. SEROQUEL [Suspect]
     Indication: DEPRESSION
     Dosage: 100 MG TO 200 MG
     Route: 048
     Dates: start: 20030102, end: 20050719

REACTIONS (6)
  - TYPE 2 DIABETES MELLITUS [None]
  - WEIGHT INCREASED [None]
  - HYPERLIPIDAEMIA [None]
  - OBESITY [None]
  - OVERDOSE [None]
  - BLOOD CHOLESTEROL INCREASED [None]
